FAERS Safety Report 13116522 (Version 3)
Quarter: 2017Q3

REPORT INFORMATION
  Report Type: Spontaneous
  Country: GB (occurrence: GB)
  Receive Date: 20170116
  Receipt Date: 20170712
  Transmission Date: 20171127
  Serious: Yes (Other)
  Sender: FDA-Public Use
  Company Number: GB-SUN PHARMACEUTICAL INDUSTRIES LTD-2016R1-110103

PATIENT
  Age: 39 Year
  Sex: Female

DRUGS (1)
  1. DOCETAXEL. [Suspect]
     Active Substance: DOCETAXEL
     Indication: BREAST CANCER METASTATIC
     Dosage: UNK
     Route: 042

REACTIONS (1)
  - Dermatitis bullous [Recovering/Resolving]
